FAERS Safety Report 19981695 (Version 3)
Quarter: 2021Q4

REPORT INFORMATION
  Report Type: Spontaneous
  Country: US (occurrence: US)
  Receive Date: 20211021
  Receipt Date: 20211231
  Transmission Date: 20220303
  Serious: No
  Sender: FDA-Public Use
  Company Number: US-BIOGEN-2021BI01058692

PATIENT
  Sex: Female

DRUGS (3)
  1. TYSABRI [Suspect]
     Active Substance: NATALIZUMAB
     Indication: Multiple sclerosis
     Route: 065
     Dates: start: 20180619
  2. TYSABRI [Suspect]
     Active Substance: NATALIZUMAB
     Route: 065
     Dates: start: 20160302, end: 20170323
  3. AMPYRA [Suspect]
     Active Substance: DALFAMPRIDINE
     Indication: Gait disturbance
     Route: 048
     Dates: start: 20170310

REACTIONS (1)
  - Multiple sclerosis [Unknown]
